FAERS Safety Report 18386861 (Version 1)
Quarter: 2020Q4

REPORT INFORMATION
  Report Type: Spontaneous
  Country: US (occurrence: US)
  Receive Date: 20201014
  Receipt Date: 20201014
  Transmission Date: 20210114
  Serious: No
  Sender: FDA-Public Use
  Company Number: None

PATIENT
  Age: 38 Year
  Sex: Female
  Weight: 98.43 kg

DRUGS (2)
  1. TREMFYA [Suspect]
     Active Substance: GUSELKUMAB
     Indication: PSORIASIS
     Dosage: ?          OTHER FREQUENCY:WEEK 0 AND WEEK 4;?
     Dates: start: 201910
  2. TREMFYA [Suspect]
     Active Substance: GUSELKUMAB
     Indication: HIDRADENITIS
     Dosage: ?          OTHER FREQUENCY:WEEK 0 AND WEEK 4;?
     Dates: start: 201910

REACTIONS (2)
  - Gastroenteritis viral [None]
  - Therapy interrupted [None]
